FAERS Safety Report 5473314-4 (Version None)
Quarter: 2007Q4

REPORT INFORMATION
  Report Type: 
  Country: None (occurrence: None)
  Receive Date: 20071001
  Receipt Date: 20070921
  Transmission Date: 20080405
  Serious: Yes (Hospitalization)
  Sender: FDA-Public Use
  Company Number: BE-JNJFOC-20070901488

PATIENT
  Sex: Female
  Weight: 69 kg

DRUGS (1)
  1. HALDOL [Suspect]
     Indication: VOMITING
     Route: 042

REACTIONS (2)
  - CEREBRAL INFARCTION [None]
  - CEREBROVASCULAR SPASM [None]
